FAERS Safety Report 23468903 (Version 1)
Quarter: 2024Q1

REPORT INFORMATION
  Report Type: Spontaneous
  Country: US (occurrence: US)
  Receive Date: 20240202
  Receipt Date: 20240202
  Transmission Date: 20240410
  Serious: No
  Sender: FDA-Public Use
  Company Number: US-ELI_LILLY_AND_COMPANY-US202401017542

PATIENT
  Age: 80 Year
  Sex: Female

DRUGS (5)
  1. BASAGLAR [Suspect]
     Active Substance: INSULIN GLARGINE
     Indication: Product used for unknown indication
     Dosage: 22 U, EACH EVENING
     Route: 058
     Dates: start: 202307
  2. BASAGLAR [Suspect]
     Active Substance: INSULIN GLARGINE
     Indication: Product used for unknown indication
     Dosage: 22 U, EACH EVENING
     Route: 058
     Dates: start: 202307
  3. BASAGLAR [Suspect]
     Active Substance: INSULIN GLARGINE
     Dosage: 22 U, BID
     Route: 058
  4. BASAGLAR [Suspect]
     Active Substance: INSULIN GLARGINE
     Dosage: 22 U, BID
     Route: 058
  5. NOVOLOG [Concomitant]
     Active Substance: INSULIN ASPART
     Indication: Product used for unknown indication

REACTIONS (3)
  - Inappropriate schedule of product administration [Unknown]
  - Angina pectoris [Recovered/Resolved]
  - Influenza [Unknown]

NARRATIVE: CASE EVENT DATE: 20240101
